FAERS Safety Report 8512273-4 (Version None)
Quarter: 2012Q3

REPORT INFORMATION
  Report Type: 
  Country: None (occurrence: None)
  Receive Date: 20120716
  Receipt Date: 20110531
  Transmission Date: 20120928
  Serious: No
  Sender: FDA-Public Use
  Company Number: US-009507513-2011SP025220

PATIENT

DRUGS (3)
  1. SAPHRIS [Suspect]
     Indication: SCHIZOAFFECTIVE DISORDER
     Dosage: 5 MG, UNK
     Route: 060
     Dates: start: 20100723, end: 20100801
  2. SAPHRIS [Suspect]
     Dosage: 10 MG, HS
     Route: 060
     Dates: start: 20100801, end: 20110101
  3. SAPHRIS [Suspect]
     Dosage: 5 MG, HS
     Route: 060
     Dates: start: 20110101, end: 20110501

REACTIONS (6)
  - UNDERDOSE [None]
  - JOINT SWELLING [None]
  - INAPPROPRIATE SCHEDULE OF DRUG ADMINISTRATION [None]
  - GALACTORRHOEA [None]
  - OEDEMA [None]
  - OFF LABEL USE [None]
